FAERS Safety Report 14645731 (Version 1)
Quarter: 2018Q1

REPORT INFORMATION
  Report Type: Spontaneous
  Country: US (occurrence: US)
  Receive Date: 20180316
  Receipt Date: 20180316
  Transmission Date: 20180509
  Serious: No
  Sender: FDA-Public Use
  Company Number: US-AMGEN-USASP2018035307

PATIENT
  Sex: Male

DRUGS (2)
  1. IMURAN [Concomitant]
     Active Substance: AZATHIOPRINE
     Dosage: 150 MG, QD
  2. ENBREL [Suspect]
     Active Substance: ETANERCEPT
     Indication: PSORIATIC ARTHROPATHY
     Dosage: 50 MG, 2 TIMES/WK
     Route: 065

REACTIONS (7)
  - Upper respiratory tract infection [Unknown]
  - Bronchitis [Unknown]
  - Herpes zoster [Unknown]
  - Fatigue [Unknown]
  - Lymphopenia [Unknown]
  - Drug effect incomplete [Unknown]
  - Off label use [Unknown]
